FAERS Safety Report 8974376 (Version 1)
Quarter: 2012Q4

REPORT INFORMATION
  Report Type: Spontaneous
  Country: US (occurrence: None)
  Receive Date: 20121217
  Receipt Date: 20121217
  Transmission Date: 20130627
  Serious: No
  Sender: FDA-Public Use
  Company Number: None

PATIENT
  Sex: Female
  Weight: 46.72 kg

DRUGS (1)
  1. EVISTA [Suspect]
     Dosage: 60 mg qd o
     Route: 048
     Dates: start: 20121202, end: 20121214

REACTIONS (4)
  - Tachycardia [None]
  - Hypoaesthesia [None]
  - Hypoaesthesia [None]
  - Cold sweat [None]
